FAERS Safety Report 19815495 (Version 3)
Quarter: 2022Q1

REPORT INFORMATION
  Report Type: Report from Study
  Country: DE (occurrence: DE)
  Receive Date: 20210910
  Receipt Date: 20220202
  Transmission Date: 20220423
  Serious: Yes (Hospitalization, Other)
  Sender: FDA-Public Use
  Company Number: DE-TAKEDA-2021TUS054256

PATIENT
  Age: 58 Year
  Weight: 73.923 kg

DRUGS (6)
  1. ANTIHEMOPHILIC FACTOR, PEGYLATED (MW 20000) HUMAN SEQUENCE RECOMBINANT [Suspect]
     Active Substance: ANTIHEMOPHILIC FACTOR, PEGYLATED (MW 20000) HUMAN SEQUENCE RECOMBINANT
     Indication: Haemophilia
     Dosage: 2000 INTERNATIONAL UNIT
     Route: 042
     Dates: start: 20181012, end: 20210824
  2. ANTIHEMOPHILIC FACTOR, PEGYLATED (MW 20000) HUMAN SEQUENCE RECOMBINANT [Suspect]
     Active Substance: ANTIHEMOPHILIC FACTOR, PEGYLATED (MW 20000) HUMAN SEQUENCE RECOMBINANT
     Indication: Haemophilia
     Dosage: 2000 INTERNATIONAL UNIT
     Route: 042
     Dates: start: 20181012, end: 20210824
  3. ANTIHEMOPHILIC FACTOR, PEGYLATED (MW 20000) HUMAN SEQUENCE RECOMBINANT [Suspect]
     Active Substance: ANTIHEMOPHILIC FACTOR, PEGYLATED (MW 20000) HUMAN SEQUENCE RECOMBINANT
     Indication: Haemophilia
     Dosage: 2000 INTERNATIONAL UNIT
     Route: 042
     Dates: start: 20181012, end: 20210824
  4. HARVONI [Concomitant]
     Active Substance: LEDIPASVIR\SOFOSBUVIR
     Indication: Hepatitis C
     Dosage: UNK UNK, QD
     Route: 048
     Dates: start: 20150108
  5. Tranexamsaure eberth [Concomitant]
     Indication: Product used for unknown indication
     Dosage: 1 GRAM, TID
     Route: 048
     Dates: start: 20211102, end: 20211104
  6. ENOXAPARIN SODIUM [Concomitant]
     Active Substance: ENOXAPARIN SODIUM
     Indication: Product used for unknown indication
     Dosage: 0.3 MILLIGRAM, QD
     Route: 058
     Dates: start: 20211102, end: 20211108

REACTIONS (1)
  - Appendicitis [Recovered/Resolved]

NARRATIVE: CASE EVENT DATE: 20210826
